FAERS Safety Report 8535127 (Version 7)
Quarter: 2013Q1

REPORT INFORMATION
  Report Type: Report from Study
  Country: ES (occurrence: ES)
  Receive Date: 20120427
  Receipt Date: 20130318
  Transmission Date: 20140127
  Serious: Yes (Hospitalization, Other)
  Sender: FDA-Public Use
  Company Number: ES-ROCHE-1055329

PATIENT
  Age: 76 Year
  Sex: Male
  Weight: 74.5 kg

DRUGS (28)
  1. PERTUZUMAB [Suspect]
     Indication: GASTRIC CANCER
     Dosage: LAST DOSE PRIOR TO SAE: 15/MAR/2012 AT 840MG
     Route: 042
     Dates: start: 20120315
  2. TRASTUZUMAB [Suspect]
     Indication: GASTRIC CANCER
     Dosage: LAST DOSE PRIOR TO SAE: 15/MAR/2012 AT 596MG
     Route: 042
     Dates: start: 20120315
  3. CAPECITABINE [Suspect]
     Indication: GASTRIC CANCER
     Dosage: LAST DOSE PRIOR TO SAE ON 25/MAR/2012 AT 1000MG/M2
     Route: 048
     Dates: start: 20120315
  4. CISPLATIN [Suspect]
     Indication: GASTRIC CANCER
     Dosage: LAST DOSE PRIOR TO SAE ON 15/MAR/2012 AT 80MG/M2
     Route: 042
     Dates: start: 20120315
  5. METFORMIN [Concomitant]
     Indication: DIABETES MELLITUS
     Route: 048
     Dates: start: 2010
  6. ADIRO [Concomitant]
     Route: 048
     Dates: start: 2010
  7. SEGURIL [Concomitant]
     Indication: FLUID RETENTION
     Route: 048
     Dates: start: 2010
  8. ALLOPURINOL [Concomitant]
     Indication: HYPERURICAEMIA
     Route: 048
     Dates: start: 2007
  9. LIPOSIT (SPAIN) [Concomitant]
     Indication: HYPERCHOLESTEROLAEMIA
     Route: 048
     Dates: start: 2007
  10. LOSARTAN [Concomitant]
     Indication: HYPERTENSION
     Route: 048
     Dates: start: 201112
  11. POLARAMINE [Concomitant]
     Indication: PROPHYLAXIS
     Route: 042
     Dates: start: 20120315, end: 20120315
  12. PERFALGAN [Concomitant]
     Indication: PROPHYLAXIS
     Route: 042
     Dates: start: 20120315, end: 20120315
  13. PERFALGAN [Concomitant]
     Indication: PAIN
     Route: 042
     Dates: start: 20120328, end: 20120328
  14. DEXAMETASONA [Concomitant]
     Indication: PROPHYLAXIS
     Route: 042
     Dates: start: 20120315, end: 20120315
  15. EMEND [Concomitant]
     Indication: VOMITING
     Route: 048
     Dates: start: 20120315, end: 20120315
  16. EMEND [Concomitant]
     Route: 048
     Dates: start: 20120316, end: 20120317
  17. FORTECORTIN [Concomitant]
     Indication: VOMITING
     Route: 048
     Dates: start: 20120316, end: 20120317
  18. BISOPROLOL [Concomitant]
     Indication: HYPERTENSION
     Route: 048
     Dates: start: 20120328
  19. PRIMPERAN (SPAIN) [Concomitant]
     Indication: VOMITING
     Route: 042
     Dates: start: 20120328, end: 20120329
  20. PANTOPRAZOL [Concomitant]
     Route: 042
     Dates: start: 20120328, end: 20120329
  21. PANTOPRAZOL [Concomitant]
     Route: 042
     Dates: start: 20120403, end: 20120417
  22. OMEPRAZOL [Concomitant]
     Route: 048
     Dates: start: 20120330, end: 20120402
  23. CLEXANE [Concomitant]
     Route: 058
     Dates: start: 20120328, end: 20120417
  24. CIPROFLOXACINO [Concomitant]
     Indication: PYREXIA
     Route: 042
     Dates: start: 20120328, end: 20120330
  25. BICARBONATO [Concomitant]
     Route: 042
     Dates: start: 20120328, end: 20120403
  26. MYCOSTATIN [Concomitant]
     Indication: MUCOSAL INFLAMMATION
     Route: 048
     Dates: start: 20120329, end: 20120417
  27. LORMETAZEPAM [Concomitant]
     Indication: INSOMNIA
     Route: 048
     Dates: start: 20120330, end: 20120405
  28. KONAKION [Concomitant]
     Route: 042
     Dates: start: 20120331, end: 20120409

REACTIONS (1)
  - Mucosal inflammation [Recovered/Resolved]
